FAERS Safety Report 7454367-0 (Version None)
Quarter: 2011Q2

REPORT INFORMATION
  Report Type: 
  Country: None (occurrence: None)
  Receive Date: 20110503
  Receipt Date: 20100527
  Transmission Date: 20111010
  Serious: No
  Sender: FDA-Public Use
  Company Number: US-BAYER-201024560NA

PATIENT
  Age: 19 Year
  Sex: Female

DRUGS (2)
  1. YAZ [Suspect]
     Indication: DYSMENORRHOEA
  2. YAZ [Suspect]
     Indication: ACNE
     Dosage: UNK
     Route: 048
     Dates: start: 20070101

REACTIONS (3)
  - ABDOMINAL PAIN LOWER [None]
  - AMENORRHOEA [None]
  - POLYMENORRHOEA [None]
